FAERS Safety Report 11759908 (Version 1)
Quarter: 2015Q4

REPORT INFORMATION
  Report Type: Spontaneous
  Country: US (occurrence: US)
  Receive Date: 20151120
  Receipt Date: 20151120
  Transmission Date: 20160304
  Serious: No
  Sender: FDA-Public Use
  Company Number: US-ELI_LILLY_AND_COMPANY-US201210008042

PATIENT
  Age: 83 Year
  Sex: Female

DRUGS (1)
  1. FORTEO [Suspect]
     Active Substance: TERIPARATIDE
     Indication: OSTEOPOROSIS
     Dosage: 20 UG, QD
     Dates: start: 20121019

REACTIONS (8)
  - Balance disorder [Unknown]
  - Malaise [Unknown]
  - Cystitis [Unknown]
  - Abdominal discomfort [Unknown]
  - Anxiety [Unknown]
  - Pruritus [Recovering/Resolving]
  - Generalised erythema [Unknown]
  - Nausea [Unknown]

NARRATIVE: CASE EVENT DATE: 20121021
